FAERS Safety Report 19155726 (Version 1)
Quarter: 2021Q2

REPORT INFORMATION
  Report Type: Spontaneous
  Country: SE (occurrence: SE)
  Receive Date: 20210419
  Receipt Date: 20210419
  Transmission Date: 20210717
  Serious: Yes (Hospitalization)
  Sender: FDA-Public Use
  Company Number: SE-BAUSCH-BL-2021-012488

PATIENT
  Age: 71 Year
  Sex: Male
  Weight: 83.7 kg

DRUGS (44)
  1. REVLIMID [Suspect]
     Active Substance: LENALIDOMIDE
     Dosage: 10 MILLIGRAM
     Route: 048
     Dates: end: 20141206
  2. BENOVAT [Concomitant]
     Indication: PRODUCT USED FOR UNKNOWN INDICATION
     Route: 061
     Dates: start: 20140307
  3. NOVORAPID [Concomitant]
     Active Substance: INSULIN ASPART
     Dosage: DOSE: 1 (UNITS UNSPECIFIED), 100 E/ML
     Route: 065
  4. DARBEPOETIN [Concomitant]
     Active Substance: DARBEPOETIN ALFA
     Indication: ANAEMIA PROPHYLAXIS
     Route: 058
     Dates: start: 20140512
  5. ZOPIKLON [Concomitant]
     Active Substance: ZOPICLONE
     Indication: PRODUCT USED FOR UNKNOWN INDICATION
     Route: 048
     Dates: start: 20131219
  6. DEXAMETHASONE. [Suspect]
     Active Substance: DEXAMETHASONE
     Indication: PRODUCT USED FOR UNKNOWN INDICATION
     Route: 065
  7. RAMIPRIL. [Concomitant]
     Active Substance: RAMIPRIL
     Indication: HYPERTENSION
     Dosage: 5 MILLIGRAM
     Route: 048
     Dates: start: 20130613
  8. NOVOMIX [Concomitant]
     Active Substance: INSULIN ASPART
     Indication: DIABETES MELLITUS
     Route: 058
     Dates: start: 20100818
  9. MORFIN MEDA [Concomitant]
     Active Substance: MORPHINE SULFATE
     Indication: PRODUCT USED FOR UNKNOWN INDICATION
     Route: 048
     Dates: start: 20130514, end: 20141007
  10. INNOLET [Concomitant]
     Active Substance: INSULIN NOS
     Indication: PRODUCT USED FOR UNKNOWN INDICATION
     Route: 065
  11. PIPERACILLIN/TAZOBACTAM [Concomitant]
     Active Substance: PIPERACILLIN SODIUM\TAZOBACTAM SODIUM
     Indication: PRODUCT USED FOR UNKNOWN INDICATION
     Dosage: 12 GRAM
     Route: 065
  12. KININ [Concomitant]
     Active Substance: QUININE HYDROCHLORIDE
     Indication: MUSCLE SPASMS
     Route: 048
     Dates: start: 20141008
  13. TROMBYL [Concomitant]
     Active Substance: ASPIRIN
     Indication: THROMBOSIS PROPHYLAXIS
     Dosage: 160 MILLIGRAM
     Route: 048
     Dates: start: 20131128
  14. LEVEMIR [Concomitant]
     Active Substance: INSULIN DETEMIR
     Indication: PRODUCT USED FOR UNKNOWN INDICATION
     Dosage: DOSE: 1 (UNITS UNSPECIFIED) 40 E
     Route: 065
  15. SOBRIL [Concomitant]
     Active Substance: OXAZEPAM
     Indication: PRODUCT USED FOR UNKNOWN INDICATION
     Route: 048
     Dates: start: 20131219
  16. OVIXAN [Concomitant]
     Indication: PRODUCT USED FOR UNKNOWN INDICATION
     Dosage: 1MG/G
     Route: 061
     Dates: start: 20140522
  17. NOVORAPID [Concomitant]
     Active Substance: INSULIN ASPART
     Indication: PRODUCT USED FOR UNKNOWN INDICATION
     Dosage: 4 UNITS
     Route: 058
  18. OMEPRAZOLE. [Concomitant]
     Active Substance: OMEPRAZOLE
     Indication: GASTROOESOPHAGEAL REFLUX PROPHYLAXIS
     Dosage: 20 MILLIGRAM
     Route: 048
     Dates: start: 20130515
  19. ALLOPURINOL. [Concomitant]
     Active Substance: ALLOPURINOL
     Indication: HYPERURICAEMIA
     Route: 048
     Dates: start: 20130725
  20. MORPHINE [Concomitant]
     Active Substance: MORPHINE
     Indication: PAIN
     Route: 065
  21. MOVICOL [Concomitant]
     Active Substance: POLYETHYLENE GLYCOL 3350\POTASSIUM CHLORIDE\SODIUM BICARBONATE\SODIUM CHLORIDE
     Indication: GASTROOESOPHAGEAL REFLUX PROPHYLAXIS
     Dosage: 1 BAG
     Route: 048
     Dates: start: 20130531
  22. DAIVOBET [Concomitant]
     Active Substance: BETAMETHASONE DIPROPIONATE\CALCIPOTRIENE
     Indication: PRODUCT USED FOR UNKNOWN INDICATION
     Dosage: 50 PLUS 0.5 MICROGRAM/G PLUS MG/G
     Route: 061
     Dates: start: 20140307
  23. REVLIMID [Suspect]
     Active Substance: LENALIDOMIDE
     Indication: PLASMA CELL MYELOMA
     Dosage: 10 MILLIGRAM
     Route: 048
     Dates: start: 20131128
  24. REVLIMID [Suspect]
     Active Substance: LENALIDOMIDE
     Dosage: 15 MILLIGRAM
     Route: 048
     Dates: start: 20131227
  25. REVLIMID [Suspect]
     Active Substance: LENALIDOMIDE
     Dosage: 10 MILLIGRAM
     Route: 048
     Dates: start: 20140123
  26. DEXAMETHASONE. [Suspect]
     Active Substance: DEXAMETHASONE
     Dosage: 20 MILLIGRAM
     Route: 048
     Dates: start: 20131128
  27. PLACEBO [Suspect]
     Active Substance: UNSPECIFIED INGREDIENT
     Indication: PLASMA CELL MYELOMA
     Dosage: 4 MILLIGRAM
     Route: 048
     Dates: start: 20131128
  28. PAMIDRONATE [Concomitant]
     Active Substance: PAMIDRONATE DISODIUM
     Indication: RESORPTION BONE INCREASED
     Dosage: 30 MILLIGRAM
     Route: 041
     Dates: start: 20130604
  29. RAMIPRIL. [Concomitant]
     Active Substance: RAMIPRIL
     Indication: CARDIAC FAILURE
  30. KININ [Concomitant]
     Active Substance: QUININE HYDROCHLORIDE
     Dosage: 250 MILLIGRAM
     Route: 048
     Dates: start: 20140306, end: 20141007
  31. MORPHINE [Concomitant]
     Active Substance: MORPHINE
     Route: 058
  32. CANODERM [Concomitant]
     Active Substance: UREA
     Indication: PRODUCT USED FOR UNKNOWN INDICATION
     Dosage: DOSE: 1 (UNSPECIFIED) 5%
     Route: 061
     Dates: start: 20140522
  33. DEXAMETHASONE. [Suspect]
     Active Substance: DEXAMETHASONE
     Dosage: 20 MILLIGRAM
     Route: 048
     Dates: end: 20141001
  34. EMGESAN [Concomitant]
     Active Substance: MAGNESIUM HYDROXIDE
     Indication: PRODUCT USED FOR UNKNOWN INDICATION
     Dosage: 250 MILLIGRAM
     Route: 048
     Dates: start: 20140213
  35. PRIMPERAN [Concomitant]
     Active Substance: METOCLOPRAMIDE HYDROCHLORIDE
     Indication: NAUSEA
     Route: 048
     Dates: start: 20131228
  36. OXASCAND [Concomitant]
     Active Substance: OXAZEPAM
     Route: 048
     Dates: start: 20131219
  37. DOLCONTIN [Concomitant]
     Active Substance: MORPHINE
     Dosage: DOSE: 3 (UNITS UNSPECIFIED) ,50 PLUS 50 PLUS 30
     Route: 048
     Dates: start: 20140415, end: 20141007
  38. PANODIL [Concomitant]
     Active Substance: ACETAMINOPHEN
     Indication: PRODUCT USED FOR UNKNOWN INDICATION
     Dosage: DOSE: 4 (UNITS UNSPECIFIED), 500 MG
     Route: 065
  39. DEXAMETHASONE. [Suspect]
     Active Substance: DEXAMETHASONE
     Indication: PLASMA CELL MYELOMA
     Dosage: 20 MILLIGRAM
     Route: 048
     Dates: start: 20131227
  40. PARACETAMOL [Concomitant]
     Active Substance: ACETAMINOPHEN
     Indication: PRODUCT USED FOR UNKNOWN INDICATION
     Dosage: 3 GRAM
     Route: 048
     Dates: start: 20100830
  41. TINZAPARIN [Concomitant]
     Active Substance: TINZAPARIN
     Indication: PRODUCT USED FOR UNKNOWN INDICATION
     Dosage: 14000 IU (INTERNATIONAL UNIT)
     Route: 058
     Dates: start: 20131211
  42. OXASCAND [Concomitant]
     Active Substance: OXAZEPAM
     Indication: CANCER PAIN
     Route: 048
     Dates: start: 20130613
  43. DOLCONTIN [Concomitant]
     Active Substance: MORPHINE
     Indication: PRODUCT USED FOR UNKNOWN INDICATION
     Dosage: DOSE: 3 (UNITS UNSPECIFIED) 60 PLUS 60
     Route: 048
     Dates: start: 20141008
  44. INNOHEP [Concomitant]
     Active Substance: TINZAPARIN SODIUM
     Indication: PRODUCT USED FOR UNKNOWN INDICATION
     Dosage: 1 DOSAGE FORMS
     Route: 058

REACTIONS (2)
  - Pneumococcal infection [Recovered/Resolved]
  - Pneumococcal infection [Recovered/Resolved]

NARRATIVE: CASE EVENT DATE: 20141006
